FAERS Safety Report 24296536 (Version 2)
Quarter: 2024Q4

REPORT INFORMATION
  Report Type: Spontaneous
  Country: US (occurrence: US)
  Receive Date: 20240909
  Receipt Date: 20241024
  Transmission Date: 20250115
  Serious: Yes (Other)
  Sender: ENDO
  Company Number: US-ENDO USA, INC.-2024-003340

PATIENT
  Age: 8 Year
  Sex: Female

DRUGS (3)
  1. DANTROLENE SODIUM [Suspect]
     Active Substance: DANTROLENE SODIUM
     Indication: Muscle spasms
     Dosage: 8 MILLILITER, UNKNOWN
     Dates: start: 20240816
  2. DANTROLENE SODIUM [Suspect]
     Active Substance: DANTROLENE SODIUM
     Dosage: 4 MILLILITER, UNKNOWN
     Dates: start: 202408
  3. DANTROLENE SODIUM [Suspect]
     Active Substance: DANTROLENE SODIUM
     Dosage: 8 MILLILITER, UNKNOWN

REACTIONS (3)
  - Coma [Recovered/Resolved]
  - Wrong technique in product usage process [Not Recovered/Not Resolved]
  - Suspected product quality issue [Unknown]

NARRATIVE: CASE EVENT DATE: 20240816
